FAERS Safety Report 4861232-1 (Version None)
Quarter: 2005Q4

REPORT INFORMATION
  Report Type: 
  Country: None (occurrence: None)
  Receive Date: 20051220
  Receipt Date: 20051209
  Transmission Date: 20060501
  Serious: Yes (Other)
  Sender: FDA-Public Use
  Company Number: CA-BRISTOL-MYERS SQUIBB COMPANY-13220819

PATIENT
  Age: 59 Year
  Sex: Female

DRUGS (11)
  1. TEQUIN [Suspect]
     Route: 048
  2. ATENOLOL [Concomitant]
  3. BENADRYL [Concomitant]
     Route: 048
  4. HEPARIN [Concomitant]
     Route: 042
  5. LACTOBACILLUS [Concomitant]
     Route: 048
  6. LASIX [Concomitant]
     Route: 042
  7. NYSTATIN [Concomitant]
     Route: 048
  8. RAMIPRIL [Concomitant]
     Route: 048
  9. RISTORIL [Concomitant]
     Route: 048
  10. SYNTHROID [Concomitant]
     Route: 048
  11. ZOCOR [Concomitant]
     Route: 048

REACTIONS (1)
  - HYPERGLYCAEMIA [None]
